FAERS Safety Report 6119706-1 (Version None)
Quarter: 2009Q1

REPORT INFORMATION
  Report Type: 
  Country: None (occurrence: None)
  Receive Date: 20090316
  Receipt Date: 20090304
  Transmission Date: 20090719
  Serious: Yes (Hospitalization)
  Sender: FDA-Public Use
  Company Number: US-PFIZER INC-2007083961

PATIENT
  Sex: Male
  Weight: 79.819 kg

DRUGS (13)
  1. SUTENT [Suspect]
     Indication: HEPATIC NEOPLASM MALIGNANT
     Dosage: 37.5 MG, 1X/DAY
     Route: 048
     Dates: start: 20070912, end: 20070928
  2. ATIVAN [Concomitant]
     Indication: NAUSEA
     Dosage: 1 TABLET EVERY 4-6 HOURS, AS NEEDED
     Route: 048
     Dates: start: 20071002
  3. COMPAZINE [Concomitant]
     Indication: NAUSEA
     Dosage: 1 TABLET EVERY 8 HOURS AS NEEDED
     Route: 048
     Dates: start: 20071002
  4. ZOFRAN [Concomitant]
     Indication: NAUSEA
     Dosage: 1 TABLET,EVERY 12 HOURS AS NEEDED
     Route: 048
     Dates: start: 20071002
  5. HUMALOG [Concomitant]
     Dosage: 100 UNITS/ML
     Route: 058
     Dates: start: 20070926
  6. HYDROCHLOROTHIAZIDE [Concomitant]
     Dosage: 1 TABLET
     Route: 048
     Dates: start: 20070926
  7. LANTUS [Concomitant]
     Dosage: 100 UNITS/ML
     Route: 058
     Dates: start: 20070926
  8. LISINOPRIL [Concomitant]
     Dosage: 1 TABLET
     Route: 048
     Dates: start: 20070926
  9. METOPROLOL SUCCINATE [Concomitant]
     Dosage: 1 TABLET
     Route: 048
     Dates: start: 20070926
  10. PRAVACHOL [Concomitant]
     Dosage: 1 TABLET
     Route: 048
     Dates: start: 20070926
  11. PRILOSEC [Concomitant]
  12. SPIRONOLACTONE [Concomitant]
     Dosage: 100 MG, 1X/DAY
     Route: 048
     Dates: start: 20071003
  13. ZANTAC [Concomitant]
     Dosage: 150 MG, 2X/DAY
     Route: 048
     Dates: start: 20071003

REACTIONS (4)
  - ATAXIA [None]
  - LEUKOPENIA [None]
  - NEUTROPENIA [None]
  - THROMBOCYTOPENIA [None]
